FAERS Safety Report 12074669 (Version 1)
Quarter: 2016Q1

REPORT INFORMATION
  Report Type: Spontaneous
  Country: US (occurrence: US)
  Receive Date: 20160212
  Receipt Date: 20160212
  Transmission Date: 20160526
  Serious: No
  Sender: FDA-Public Use
  Company Number: US-LPDUSPRD-20150933

PATIENT
  Age: 54 Year
  Sex: Female

DRUGS (1)
  1. INJECTAFER [Suspect]
     Active Substance: FERRIC CARBOXYMALTOSE
     Dosage: DOSE UNKNOWN
     Route: 065
     Dates: start: 20151111

REACTIONS (2)
  - Back pain [Not Recovered/Not Resolved]
  - Headache [Not Recovered/Not Resolved]

NARRATIVE: CASE EVENT DATE: 201511
